FAERS Safety Report 13235037 (Version 3)
Quarter: 2017Q2

REPORT INFORMATION
  Report Type: Report from Study
  Country: CA (occurrence: CA)
  Receive Date: 20170215
  Receipt Date: 20170618
  Transmission Date: 20170830
  Serious: Yes (Hospitalization, Other)
  Sender: FDA-Public Use
  Company Number: CA-TEVA-729041ACC

PATIENT
  Age: 56 Year
  Sex: Female
  Weight: 98.8 kg

DRUGS (4)
  1. IMURAN [Concomitant]
     Active Substance: AZATHIOPRINE
     Dosage: 150 MILLIGRAM DAILY; STRENGTH: 50MG. 3 TABS QD
  2. PERCOCET [Concomitant]
     Active Substance: ACETAMINOPHEN\OXYCODONE HYDROCHLORIDE
     Dosage: 5/325, HALF TABLET-MINIMAL USE
  3. COPAXONE [Suspect]
     Active Substance: GLATIRAMER ACETATE
     Indication: MULTIPLE SCLEROSIS
     Dosage: 20 MILLIGRAM/MILLILITERS DAILY;
     Route: 058
     Dates: start: 20160813, end: 20170228
  4. MULTIVITAMIN [Concomitant]
     Active Substance: VITAMINS

REACTIONS (4)
  - Adenocarcinoma [Not Recovered/Not Resolved]
  - Neoplasm malignant [Unknown]
  - Urinary retention [Unknown]
  - Seroma [Unknown]

NARRATIVE: CASE EVENT DATE: 20170302
